FAERS Safety Report 23290715 (Version 1)
Quarter: 2023Q4

REPORT INFORMATION
  Report Type: Spontaneous
  Country: US (occurrence: US)
  Receive Date: 20231213
  Receipt Date: 20231213
  Transmission Date: 20240109
  Serious: No
  Sender: FDA-Public Use
  Company Number: US-ABBVIE-2300334US

PATIENT
  Sex: Female

DRUGS (1)
  1. BOTOX [Suspect]
     Active Substance: ONABOTULINUMTOXINA
     Indication: Hypertonic bladder
     Dosage: TIME INTERVAL: AS NECESSARY
     Route: 030
     Dates: start: 20221212, end: 20221212

REACTIONS (4)
  - Angioedema [Unknown]
  - Hypertension [Unknown]
  - Urticaria [Unknown]
  - Syncope [Unknown]

NARRATIVE: CASE EVENT DATE: 20220101
